FAERS Safety Report 13981927 (Version 13)
Quarter: 2019Q2

REPORT INFORMATION
  Report Type: Spontaneous
  Country: JP (occurrence: JP)
  Receive Date: 20170918
  Receipt Date: 20190503
  Transmission Date: 20190711
  Serious: Yes (Hospitalization, Other)
  Sender: FDA-Public Use
  Company Number: JP-009507513-1709JPN001392J

PATIENT
  Age: 61 Year
  Sex: Female
  Weight: 49 kg

DRUGS (9)
  1. SPIRIVA [Concomitant]
     Active Substance: TIOTROPIUM BROMIDE MONOHYDRATE
     Dosage: 18 MICROGRAM, QD
     Route: 055
  2. LOXONIN [Concomitant]
     Active Substance: LOXOPROFEN SODIUM
     Indication: LUNG ADENOCARCINOMA
     Dosage: 60 MG, PRN
     Route: 048
  3. CALONAL [Concomitant]
     Active Substance: ACETAMINOPHEN
     Indication: LUNG ADENOCARCINOMA
     Dosage: 200 MG, PRN
     Route: 048
  4. KEYTRUDA [Suspect]
     Active Substance: PEMBROLIZUMAB
     Indication: LUNG ADENOCARCINOMA
     Dosage: 200 MG, Q3W
     Route: 041
     Dates: start: 20170421, end: 20170921
  5. KEYTRUDA [Suspect]
     Active Substance: PEMBROLIZUMAB
     Dosage: 200 MILLIGRAM, Q3W
     Route: 041
     Dates: start: 20180124
  6. RELVAR [Concomitant]
     Active Substance: FLUTICASONE FUROATE\VILANTEROL TRIFENATATE
     Dosage: 100 MICROGRAM, QD
     Route: 055
  7. KEYTRUDA [Suspect]
     Active Substance: PEMBROLIZUMAB
     Dosage: 200 MILLIGRAM, Q3W
     Route: 041
     Dates: start: 20171019, end: 20171130
  8. PL [Concomitant]
     Active Substance: ACETAMINOPHEN\CAFFEINE\PROMETHAZINE\SALICYLAMIDE
     Indication: LUNG ADENOCARCINOMA
     Dosage: 1 G, TID
     Route: 048
  9. MEVALOTIN [Concomitant]
     Active Substance: PRAVASTATIN SODIUM
     Dosage: 10 MG, QD
     Route: 048

REACTIONS (8)
  - Fulminant type 1 diabetes mellitus [Recovering/Resolving]
  - Thyroid function test abnormal [Recovered/Resolved]
  - Amylase increased [Not Recovered/Not Resolved]
  - Blood glucose increased [Recovering/Resolving]
  - Autoimmune thyroiditis [Unknown]
  - Chronic obstructive pulmonary disease [Unknown]
  - Immune-mediated adverse reaction [Unknown]
  - Diabetic ketoacidosis [Recovering/Resolving]

NARRATIVE: CASE EVENT DATE: 20170517
